FAERS Safety Report 10805991 (Version 1)
Quarter: 2015Q1

REPORT INFORMATION
  Report Type: Report from Study
  Country: US (occurrence: US)
  Receive Date: 20150217
  Receipt Date: 20150217
  Transmission Date: 20150721
  Serious: No
  Sender: FDA-Public Use
  Company Number: US-ABBVIE-14K-163-1249617-00

PATIENT
  Age: 20 Year
  Sex: Male

DRUGS (2)
  1. HUMIRA [Suspect]
     Active Substance: ADALIMUMAB
     Indication: COLITIS ULCERATIVE
     Dosage: DAY 1
     Dates: start: 201406, end: 201406
  2. HUMIRA [Suspect]
     Active Substance: ADALIMUMAB

REACTIONS (9)
  - Paraesthesia [Unknown]
  - Abdominal discomfort [Recovered/Resolved]
  - Faeces discoloured [Unknown]
  - Abdominal pain [Recovered/Resolved]
  - Discomfort [Unknown]
  - Abdominal pain lower [Recovered/Resolved]
  - Frequent bowel movements [Unknown]
  - Abdominal pain upper [Unknown]
  - Diarrhoea haemorrhagic [Unknown]

NARRATIVE: CASE EVENT DATE: 20140610
